FAERS Safety Report 6279384-8 (Version None)
Quarter: 2009Q3

REPORT INFORMATION
  Report Type: 
  Country: None (occurrence: None)
  Receive Date: 20090721
  Receipt Date: 20090707
  Transmission Date: 20100115
  Serious: Yes (Death, Hospitalization)
  Sender: FDA-Public Use
  Company Number: 2009002030

PATIENT
  Age: 67 Year
  Sex: Male

DRUGS (10)
  1. ERLOTINIB (ERLOTINIB) (TABLET) (ERLOTINIB) [Suspect]
     Indication: NON-SMALL CELL LUNG CANCER
     Dosage: (150 MG, QD), ORAL
     Route: 048
     Dates: start: 20090105, end: 20090113
  2. BUFFERIN [Concomitant]
  3. DILTIAZEM HYDROCHLORIDE [Concomitant]
  4. ISOSORBIDE MONONITRATE [Concomitant]
  5. PANVITAN (PANVITAN) [Concomitant]
  6. BASEN (VOGLIBOSE) [Concomitant]
  7. MUCODYNE (CARBOCISTEINE) [Concomitant]
  8. FAMOTIDINE [Concomitant]
  9. GLIMICRON (GLICLAZIDE) [Concomitant]
  10. PIPERACILLIN [Concomitant]

REACTIONS (8)
  - BACTERIAL CULTURE POSITIVE [None]
  - CHLAMYDIA IDENTIFICATION TEST POSITIVE [None]
  - CONDITION AGGRAVATED [None]
  - DISSEMINATED INTRAVASCULAR COAGULATION [None]
  - DRY SKIN [None]
  - INTERSTITIAL LUNG DISEASE [None]
  - LUNG NEOPLASM MALIGNANT [None]
  - STOMATITIS [None]
